FAERS Safety Report 13708801 (Version 1)
Quarter: 2017Q2

REPORT INFORMATION
  Report Type: Report from Study
  Country: US (occurrence: US)
  Receive Date: 20170630
  Receipt Date: 20170630
  Transmission Date: 20170830
  Serious: No
  Sender: FDA-Public Use
  Company Number: US-IPSEN BIOPHARMACEUTICALS, INC.-2016-01512

PATIENT
  Age: 38 Year
  Sex: Male
  Weight: 104.33 kg

DRUGS (4)
  1. LANREOTIDE AUTOGEL [Suspect]
     Active Substance: LANREOTIDE
     Indication: ACROMEGALY
     Dosage: NOT REPORTED
     Route: 058
     Dates: start: 20160215
  2. SINGULAIR [Concomitant]
     Active Substance: MONTELUKAST SODIUM
     Indication: PRODUCT USED FOR UNKNOWN INDICATION
  3. ALBUTEROL INHALER [Concomitant]
     Active Substance: ALBUTEROL
     Indication: PRODUCT USED FOR UNKNOWN INDICATION
  4. METFORMIN [Concomitant]
     Active Substance: METFORMIN HYDROCHLORIDE
     Indication: PRODUCT USED FOR UNKNOWN INDICATION

REACTIONS (1)
  - Gastrointestinal pain [Recovered/Resolved]

NARRATIVE: CASE EVENT DATE: 20150215
